FAERS Safety Report 9153718 (Version 1)
Quarter: 2013Q1

REPORT INFORMATION
  Report Type: Spontaneous
  Country: US (occurrence: None)
  Receive Date: 20130308
  Receipt Date: 20130308
  Transmission Date: 20140127
  Serious: Yes (Hospitalization)
  Sender: FDA-Public Use
  Company Number: None

PATIENT
  Age: 22 Year
  Sex: Male
  Weight: 72.58 kg

DRUGS (1)
  1. ROPIVACAINE [Suspect]
     Indication: NERVE BLOCK
     Dosage: 0.5% ONCE SUBDERMAL
     Route: 059
     Dates: start: 20121002, end: 20121002

REACTIONS (2)
  - Convulsion [None]
  - Cardiac arrest [None]
